FAERS Safety Report 26053332 (Version 1)
Quarter: 2025Q4

REPORT INFORMATION
  Report Type: Spontaneous
  Country: US (occurrence: None)
  Receive Date: 20251116
  Receipt Date: 20251116
  Transmission Date: 20260118
  Serious: Yes (Hospitalization)
  Sender: FDA-CTU
  Company Number: None

PATIENT
  Age: 9 Year
  Sex: Female

DRUGS (1)
  1. MEKINIST [Suspect]
     Active Substance: TRAMETINIB DIMETHYL SULFOXIDE
     Indication: Central nervous system neoplasm
     Dosage: OTHER QUANTITY : 1 MG AND 80 MG;?OTHER FREQUENCY : 1 MG DAILY; 80 MG TWICE DAILY ;?

REACTIONS (1)
  - Hospitalisation [None]
